FAERS Safety Report 6915827-1 (Version None)
Quarter: 2010Q3

REPORT INFORMATION
  Report Type: 
  Country: None (occurrence: None)
  Receive Date: 20100810
  Receipt Date: 20100519
  Transmission Date: 20110219
  Serious: No
  Sender: FDA-Public Use
  Company Number: A0860414A

PATIENT
  Age: 55 Year
  Sex: Male

DRUGS (5)
  1. PAXIL [Suspect]
     Indication: DEPRESSION
     Dosage: 20MG PER DAY
     Route: 048
     Dates: start: 20100101, end: 20100501
  2. LAMICTAL [Concomitant]
  3. OXYBUTYNIN CHLORIDE [Concomitant]
  4. AMITRIPTYLINE HYDROCHLORIDE [Concomitant]
  5. DOXAZOSIN [Concomitant]

REACTIONS (2)
  - SEMEN VOLUME DECREASED [None]
  - SEXUAL DYSFUNCTION [None]
